FAERS Safety Report 7866704-3 (Version None)
Quarter: 2011Q4

REPORT INFORMATION
  Report Type: 
  Country: None (occurrence: None)
  Receive Date: 20111028
  Receipt Date: 20110803
  Transmission Date: 20120403
  Serious: No
  Sender: FDA-Public Use
  Company Number: US-GLAXOSMITHKLINE-A0939548A

PATIENT
  Sex: Female

DRUGS (4)
  1. ADVAIR DISKUS 100/50 [Suspect]
     Indication: ASTHMA
     Dosage: 1PUFF TWICE PER DAY
     Route: 055
     Dates: end: 20110613
  2. CELEBREX [Concomitant]
  3. ALLEGRA D 24 HOUR [Concomitant]
  4. ALLEGRA [Concomitant]

REACTIONS (3)
  - DYSPHONIA [None]
  - APHONIA [None]
  - LARYNGITIS [None]
